FAERS Safety Report 10566284 (Version 2)
Quarter: 2014Q4

REPORT INFORMATION
  Report Type: Spontaneous
  Country: JP (occurrence: JP)
  Receive Date: 20141105
  Receipt Date: 20141105
  Transmission Date: 20150529
  Serious: Yes (Other)
  Sender: FDA-Public Use
  Company Number: JP-BAYER-2014-156789

PATIENT

DRUGS (1)
  1. STIVARGA [Suspect]
     Active Substance: REGORAFENIB
     Indication: COLORECTAL CANCER
     Dosage: 160 MG, QD
     Route: 048
     Dates: start: 20141018

REACTIONS (3)
  - Renal impairment [Recovered/Resolved]
  - Oral pain [Recovering/Resolving]
  - Oropharyngeal pain [Recovering/Resolving]
